FAERS Safety Report 5978679-2 (Version None)
Quarter: 2008Q4

REPORT INFORMATION
  Report Type: 
  Country: None (occurrence: None)
  Receive Date: 20081204
  Receipt Date: 20081126
  Transmission Date: 20090506
  Serious: Yes (Hospitalization)
  Sender: FDA-Public Use
  Company Number: FR-ASTRAZENECA-2008CG01743

PATIENT
  Age: 32553 Day
  Sex: Female

DRUGS (8)
  1. TENORMIN [Suspect]
     Indication: HYPERTENSION
     Route: 048
     Dates: start: 20060101, end: 20080306
  2. SOLUPRED [Suspect]
     Indication: MUSCULOSKELETAL PAIN
     Route: 048
     Dates: start: 20071101, end: 20071101
  3. SOLUPRED [Suspect]
     Route: 048
     Dates: start: 20080201, end: 20080201
  4. DAFLON [Concomitant]
     Indication: VENOUS INSUFFICIENCY
     Route: 048
     Dates: start: 20030101, end: 20080306
  5. VASTAREL [Concomitant]
     Route: 048
     Dates: start: 20030101, end: 20080306
  6. FLECAINE [Concomitant]
     Indication: HEART DISEASE CONGENITAL
     Route: 048
     Dates: start: 20050101, end: 20080301
  7. FLECAINE [Concomitant]
     Route: 048
     Dates: start: 20080310, end: 20080317
  8. TAREG [Concomitant]
     Indication: HYPERTENSION
     Route: 048
     Dates: start: 20030101, end: 20080306

REACTIONS (6)
  - BLOOD CHLORIDE DECREASED [None]
  - BLOOD SODIUM DECREASED [None]
  - PANCREATITIS ACUTE [None]
  - PNEUMONIA [None]
  - RESPIRATORY DISTRESS [None]
  - SUPERINFECTION [None]
